FAERS Safety Report 6505405-0 (Version None)
Quarter: 2009Q4

REPORT INFORMATION
  Report Type: 
  Country: None (occurrence: None)
  Receive Date: 20091218
  Receipt Date: 20091211
  Transmission Date: 20100525
  Serious: Yes (Other)
  Sender: FDA-Public Use
  Company Number: DE-NOVOPROD-285083

PATIENT
  Sex: Male
  Weight: 98.1 kg

DRUGS (7)
  1. NORDITROPIN [Suspect]
     Indication: HYPOPITUITARISM
     Dosage: .2 MG, QD
     Route: 058
     Dates: start: 20080813, end: 20090313
  2. NORDITROPIN [Suspect]
     Dosage: .2 MG, QD
     Route: 058
     Dates: start: 20090710
  3. NORPROLAC [Concomitant]
     Dosage: 75 UG, QD
     Route: 048
     Dates: start: 20030101
  4. HYDROCORTISON                      /00028601/ [Concomitant]
     Dosage: 15 MG, QD
     Route: 048
     Dates: start: 20060101
  5. MOXONIDIN [Concomitant]
     Dosage: .4 MG, QD
     Route: 048
     Dates: start: 20020101
  6. ACCUZIDE [Concomitant]
     Dosage: 20 MG, QD
     Route: 048
     Dates: start: 20020101
  7. NORVASC [Concomitant]
     Dosage: 5 MG, QD
     Route: 048
     Dates: start: 20020101

REACTIONS (1)
  - ENCHONDROMA [None]
